FAERS Safety Report 11277405 (Version 1)
Quarter: 2015Q3

REPORT INFORMATION
  Report Type: Spontaneous
  Country: DE (occurrence: DE)
  Receive Date: 20150716
  Receipt Date: 20150716
  Transmission Date: 20151125
  Serious: Yes (Other)
  Sender: FDA-Public Use
  Company Number: DE-PFIZER INC-2015232037

PATIENT
  Age: 72 Year
  Sex: Female

DRUGS (2)
  1. LYRICA [Suspect]
     Active Substance: PREGABALIN
     Indication: INTERVERTEBRAL DISC PROTRUSION
     Dosage: 150 MG, 2X/DAY (FOR 6-7 YEARS)
  2. TRAMADOL. [Suspect]
     Active Substance: TRAMADOL

REACTIONS (10)
  - Retinoschisis [Unknown]
  - Vision blurred [Not Recovered/Not Resolved]
  - Cataract [Unknown]
  - Keratitis [Unknown]
  - Amblyopia [Unknown]
  - Hypermetropia [Unknown]
  - Strabismus [Unknown]
  - Astigmatism [Unknown]
  - Presbyopia [Unknown]
  - Retinal haemorrhage [Unknown]

NARRATIVE: CASE EVENT DATE: 201409
